FAERS Safety Report 9734157 (Version 8)
Quarter: 2016Q1

REPORT INFORMATION
  Report Type: Spontaneous
  Country: US (occurrence: US)
  Receive Date: 20131205
  Receipt Date: 20160226
  Transmission Date: 20160526
  Serious: Yes (Hospitalization, Disabling, Other)
  Sender: FDA-Public Use
  Company Number: US-009507513-1312USA001842

PATIENT
  Sex: Female

DRUGS (3)
  1. FOSAMAX [Suspect]
     Active Substance: ALENDRONATE SODIUM
     Indication: OSTEOPOROSIS PROPHYLAXIS
     Dosage: 70 MG, UNKNOWN
     Route: 048
     Dates: start: 200406, end: 200512
  2. FOSAMAX [Suspect]
     Active Substance: ALENDRONATE SODIUM
     Indication: OSTEOPOROSIS
  3. FOSAMAX PLUS D [Suspect]
     Active Substance: ALENDRONATE SODIUM\CHOLECALCIFEROL
     Indication: OSTEOPOROSIS
     Dosage: 70 MG/2800 MG, WEEKLY
     Route: 048
     Dates: start: 200601, end: 20080516

REACTIONS (25)
  - Fall [Unknown]
  - Hypertension [Unknown]
  - Hypocalcaemia [Unknown]
  - Hip arthroplasty [Unknown]
  - Femur fracture [Not Recovered/Not Resolved]
  - Respiratory disorder [Unknown]
  - Spinal osteoarthritis [Unknown]
  - Impaired healing [Unknown]
  - Back pain [Unknown]
  - Intramedullary rod insertion [Unknown]
  - Hyperlipidaemia [Unknown]
  - Arthritis [Unknown]
  - Appendix disorder [Unknown]
  - Embolism venous [Unknown]
  - Hip fracture [Unknown]
  - Long QT syndrome [Unknown]
  - Magnesium metabolism disorder [Unknown]
  - Hypokalaemia [Unknown]
  - Road traffic accident [Unknown]
  - Fall [Unknown]
  - Haemorrhagic anaemia [Unknown]
  - Low turnover osteopathy [Not Recovered/Not Resolved]
  - Osteoarthritis [Unknown]
  - Osteoporosis [Not Recovered/Not Resolved]
  - Head injury [Unknown]

NARRATIVE: CASE EVENT DATE: 200406
